FAERS Safety Report 14056251 (Version 2)
Quarter: 2017Q4

REPORT INFORMATION
  Report Type: Report from Study
  Country: MY (occurrence: MY)
  Receive Date: 20171006
  Receipt Date: 20171114
  Transmission Date: 20180321
  Serious: Yes (Death, Other)
  Sender: FDA-Public Use
  Company Number: PHHY2017MY146568

PATIENT
  Sex: Male

DRUGS (1)
  1. GLIVEC [Suspect]
     Active Substance: IMATINIB MESYLATE
     Indication: GASTROINTESTINAL STROMAL TUMOUR
     Dosage: 400 MG, UNK
     Route: 065
     Dates: start: 20111129, end: 20170511

REACTIONS (5)
  - Metastasis [Fatal]
  - Malignant neoplasm progression [Fatal]
  - Metastases to gastrointestinal tract [Unknown]
  - Gastrointestinal stromal tumour [Fatal]
  - Metastases to liver [Unknown]
